FAERS Safety Report 8290272-8 (Version None)
Quarter: 2012Q2

REPORT INFORMATION
  Report Type: 
  Country: None (occurrence: None)
  Receive Date: 20120417
  Receipt Date: 20120402
  Transmission Date: 20120825
  Serious: Yes (Other)
  Sender: FDA-Public Use
  Company Number: JP-WATSON-2012-05899

PATIENT
  Age: 17 Year
  Sex: Female

DRUGS (13)
  1. TACROLIMUS [Suspect]
     Indication: LUNG TRANSPLANT
     Dosage: UNK
     Route: 065
  2. VINCRISTINE [Suspect]
     Indication: CHEMOTHERAPY
     Dosage: 1.3 MG/DAY, 1 TIME
     Route: 065
  3. ASPARAGINASE [Suspect]
     Indication: CHEMOTHERAPY
     Dosage: 3000 IU/MM/DAY ON DAY 9, 11, 13, 16, 18, 20
     Route: 065
  4. ETOPOSIDE [Suspect]
     Indication: CHEMOTHERAPY
     Dosage: 100 MG/M2, 3 TIMES
     Route: 065
  5. MERCAPTOPURINE [Suspect]
     Indication: CHEMOTHERAPY
     Dosage: 25 MG/M2, 21 TIMES
     Route: 065
  6. DEXAMETHASONE [Suspect]
     Route: 037
  7. METHOTREXATE [Suspect]
     Indication: CHEMOTHERAPY
     Dosage: UNK
     Route: 037
  8. ITRACONAZOLE [Suspect]
     Indication: PROPHYLAXIS
     Dosage: UNK
     Route: 065
  9. LEUKOVORIN [Suspect]
     Indication: CHEMOTHERAPY
     Route: 065
  10. PREDNISOLONE [Suspect]
     Indication: ACUTE LYMPHOCYTIC LEUKAEMIA
     Dosage: 60 MG/MM/DAY ON DAY 1-7
     Route: 065
  11. DEXAMETHASONE [Suspect]
     Indication: CHEMOTHERAPY
     Dosage: 40 MG/BODY 2 TIMES
     Route: 065
  12. CYTARABINE [Suspect]
     Indication: CHEMOTHERAPY
     Dosage: 2 G, UNK 2 TIMES
     Route: 065
  13. METHOTREXATE [Suspect]
     Dosage: 500 MG/M2, UNK
     Route: 065

REACTIONS (6)
  - SUBILEUS [None]
  - DRUG INTERACTION [None]
  - LEUKOENCEPHALOPATHY [None]
  - INAPPROPRIATE ANTIDIURETIC HORMONE SECRETION [None]
  - DRUG LEVEL INCREASED [None]
  - RASH [None]
